FAERS Safety Report 17019445 (Version 1)
Quarter: 2019Q4

REPORT INFORMATION
  Report Type: Spontaneous
  Country: BR (occurrence: BR)
  Receive Date: 20191112
  Receipt Date: 20191112
  Transmission Date: 20200122
  Serious: Yes (Other)
  Sender: FDA-Public Use
  Company Number: BR-SA-2019SA307511

PATIENT
  Sex: Female

DRUGS (1)
  1. CLEXANE [Suspect]
     Active Substance: ENOXAPARIN SODIUM
     Dosage: UNK

REACTIONS (2)
  - Exposure during pregnancy [Unknown]
  - Abortion [Unknown]
